FAERS Safety Report 17129247 (Version 2)
Quarter: 2019Q4

REPORT INFORMATION
  Report Type: Report from Study
  Country: MX (occurrence: MX)
  Receive Date: 20191209
  Receipt Date: 20191210
  Transmission Date: 20200122
  Serious: Yes (Death)
  Sender: FDA-Public Use
  Company Number: MX-TEVA-2019-MX-1149498

PATIENT
  Age: 5 Year
  Sex: Male

DRUGS (4)
  1. VINCRISTINE [Suspect]
     Active Substance: VINCRISTINE
     Indication: ACUTE LYMPHOCYTIC LEUKAEMIA
     Dosage: FOUR ONCE WEEKLY DOSES
     Route: 065
  2. CYCLOPHOSPHAMIDE. [Suspect]
     Active Substance: CYCLOPHOSPHAMIDE
     Indication: ACUTE LYMPHOCYTIC LEUKAEMIA
     Dosage: 400MG WAS PRESCRIBED INSTEAD OF 250MG
     Route: 065
  3. L-ASPARAGINASE [Suspect]
     Active Substance: ASPARAGINASE
     Indication: ACUTE LYMPHOCYTIC LEUKAEMIA
     Dosage: NINE DOSES OF 10,000 IU/M2
     Route: 065
  4. DAUNORUBICIN [Suspect]
     Active Substance: DAUNORUBICIN
     Indication: ACUTE LYMPHOCYTIC LEUKAEMIA
     Dosage: TWO ONCE WEEKLY DOSES ON THE FIRST 2 WEEKS
     Route: 065

REACTIONS (5)
  - Gastrointestinal disorder [Fatal]
  - Septic shock [Fatal]
  - Prescribed overdose [Fatal]
  - Product prescribing error [Fatal]
  - Therapeutic response decreased [Unknown]
